FAERS Safety Report 10149460 (Version 1)
Quarter: 2014Q2

REPORT INFORMATION
  Report Type: Report from Study
  Country: US (occurrence: None)
  Receive Date: 20140430
  Receipt Date: 20140430
  Transmission Date: 20141212
  Serious: Yes (Hospitalization, Other)
  Sender: FDA-Public Use
  Company Number: VAL_03098_2014

PATIENT
  Age: 80 Year
  Sex: Male
  Weight: 104.5 kg

DRUGS (14)
  1. BENAZEPRIL [Suspect]
     Indication: HYPERTENSION
     Dates: start: 20120224, end: 20120831
  2. CARVEDILOL [Suspect]
     Indication: CARDIAC FAILURE CONGESTIVE
     Route: 048
     Dates: start: 20120414, end: 20120831
  3. PLACEBO [Suspect]
     Indication: OSTEOARTHRITIS
     Dates: start: 20101201
  4. PLACEBO [Suspect]
     Indication: RHEUMATOID ARTHRITIS
     Dates: start: 20101201
  5. NEXIAM [Concomitant]
  6. ALLOPURINOL [Concomitant]
  7. POTASSIUM [Concomitant]
  8. ROPINIROL [Concomitant]
  9. ACETYLSALICYLIC ACID [Concomitant]
  10. FUROSEMIDE [Concomitant]
  11. MAGNESIUM OXIDE [Concomitant]
  12. METOLAZONE [Concomitant]
  13. PRILOSEC [Concomitant]
  14. REQUIP [Concomitant]

REACTIONS (12)
  - Malaise [None]
  - Loss of consciousness [None]
  - Bradycardia [None]
  - Hypotension [None]
  - Urinary tract infection [None]
  - Blood glucose increased [None]
  - Blood urea increased [None]
  - Lymphocyte count decreased [None]
  - Chest pain [None]
  - PCO2 increased [None]
  - PO2 increased [None]
  - Cardiac failure congestive [None]
